FAERS Safety Report 21268327 (Version 2)
Quarter: 2022Q4

REPORT INFORMATION
  Report Type: Spontaneous
  Country: US (occurrence: US)
  Receive Date: 20220830
  Receipt Date: 20221005
  Transmission Date: 20230113
  Serious: Yes (Hospitalization, Other)
  Sender: FDA-Public Use
  Company Number: US-Y-MABS THERAPEUTICS, INC.-SPO2022-US-000819

PATIENT

DRUGS (12)
  1. DANYELZA [Suspect]
     Active Substance: NAXITAMAB-GQGK
     Indication: Neuroblastoma
     Dosage: CYCLE 1, DOSE 1
     Route: 042
     Dates: start: 20220808, end: 20220808
  2. GRANULOCYTE-MACROPHAGE COLONY-STIMULATING FACTOR [Concomitant]
     Active Substance: GRANULOCYTE-MACROPHAGE COLONY-STIMULATING FACTOR
     Indication: Neuroblastoma
  3. BENADRYL [Concomitant]
     Active Substance: DIPHENHYDRAMINE HYDROCHLORIDE
     Indication: Premedication
  4. OXYCODONE [Concomitant]
     Active Substance: OXYCODONE
     Indication: Premedication
     Route: 048
  5. FAMOTIDINE [Concomitant]
     Active Substance: FAMOTIDINE
     Indication: Premedication
     Route: 048
  6. KETAMINE [Concomitant]
     Active Substance: KETAMINE
     Indication: Premedication
     Route: 048
  7. APAP [Concomitant]
     Active Substance: ACETAMINOPHEN
     Indication: Premedication
  8. SODIUM CHLORIDE [Concomitant]
     Active Substance: SODIUM CHLORIDE
  9. HEPARIN SODIUM [Concomitant]
     Active Substance: HEPARIN SODIUM
  10. CHOLECALCIFEROL [Concomitant]
     Active Substance: CHOLECALCIFEROL
     Indication: Premedication
  11. GABAPENTIN [Concomitant]
     Active Substance: GABAPENTIN
     Indication: Premedication
  12. IBUPROFEN [Concomitant]
     Active Substance: IBUPROFEN
     Dosage: 280 MILLIGRAM
     Route: 048
     Dates: start: 20220706, end: 20220706

REACTIONS (3)
  - Bradycardia [Recovered/Resolved]
  - Hallucination [Recovered/Resolved]
  - Hypotension [Recovered/Resolved]

NARRATIVE: CASE EVENT DATE: 20220808
